APPROVED DRUG PRODUCT: NICOTINE POLACRILEX
Active Ingredient: NICOTINE POLACRILEX
Strength: EQ 4MG BASE
Dosage Form/Route: GUM, CHEWING;BUCCAL
Application: A076778 | Product #001
Applicant: L PERRIGO CO
Approved: Sep 16, 2004 | RLD: No | RS: No | Type: DISCN